FAERS Safety Report 5564076-0 (Version None)
Quarter: 2007Q4

REPORT INFORMATION
  Report Type: 
  Country: None (occurrence: None)
  Receive Date: 20071217
  Receipt Date: 20071203
  Transmission Date: 20080405
  Serious: Yes (Disabling)
  Sender: FDA-Public Use
  Company Number: GB-RANBAXY-2006RR-04903

PATIENT

DRUGS (2)
  1. CLARITHROMYCIN 500MG TABLETS [Suspect]
     Indication: LOWER RESPIRATORY TRACT INFECTION
     Dosage: 500 MG, BID
     Route: 048
     Dates: start: 20061029, end: 20061031
  2. NARATRIPTAN [Concomitant]
     Indication: MIGRAINE
     Dosage: 25 MG, PRN
     Route: 048
     Dates: start: 19970730

REACTIONS (4)
  - DIARRHOEA [None]
  - HAEMORRHAGE [None]
  - THROMBOCYTOPENIA [None]
  - VOMITING [None]
